FAERS Safety Report 23072449 (Version 2)
Quarter: 2023Q4

REPORT INFORMATION
  Report Type: Spontaneous
  Country: PT (occurrence: PT)
  Receive Date: 20231017
  Receipt Date: 20231019
  Transmission Date: 20240110
  Serious: Yes (Hospitalization, Other)
  Sender: FDA-Public Use
  Company Number: PT-CHEPLA-2023012868

PATIENT
  Age: 50 Year
  Sex: Female

DRUGS (25)
  1. CLONAZEPAM [Suspect]
     Active Substance: CLONAZEPAM
     Dosage: CLONAZEPAM 2 MG ID
     Dates: start: 20220622
  2. CLONAZEPAM [Suspect]
     Active Substance: CLONAZEPAM
     Dosage: 2 MG ? 2 ID
     Dates: start: 20220818
  3. QUETIAPINE [Suspect]
     Active Substance: QUETIAPINE
     Dosage: 200 MG ID
     Dates: start: 2022
  4. QUETIAPINE [Suspect]
     Active Substance: QUETIAPINE
     Dosage: [...] INCREASING THE DOSE OF QUETIAPINE TO 5 ID
     Route: 048
     Dates: start: 20220707, end: 20220818
  5. QUETIAPINE [Suspect]
     Active Substance: QUETIAPINE
     Dosage: [...] THE PATIENT WAS TAKING DIFFERENT MEDICATION AND AT A HIGHER DOSE THAN PRESCRIBED - QUETIAPI...
     Route: 048
     Dates: end: 20220707
  6. OLANZAPINE [Suspect]
     Active Substance: OLANZAPINE
     Dates: start: 20220921
  7. OLANZAPINE [Suspect]
     Active Substance: OLANZAPINE
     Dosage: THE PATIENT WAS TAKING DIFFERENT MEDICATION AND AT A HIGHER DOSE THAN PRESCRIBED - ?OLANZAPINE 1...
     Dates: end: 20220707
  8. PAROXETINE [Suspect]
     Active Substance: PAROXETINE
     Dosage: PAROXETINE 20 MG ID
     Dates: start: 20220707, end: 20220818
  9. PAROXETINE [Suspect]
     Active Substance: PAROXETINE
     Dosage: 20 MG 2 ID
     Dates: start: 20220818, end: 20220921
  10. PAROXETINE [Suspect]
     Active Substance: PAROXETINE
     Dosage: [...] PATIENT WAS TAKING DIFFERENT MEDICATION AND AT A HIGHER DOSE THAN PRESCRIBED - ?PAROXETINE...
     Dates: end: 20220707
  11. GABAPENTIN [Suspect]
     Active Substance: GABAPENTIN
     Dosage: GABAPENTIN 600 MG 3 ID
     Dates: start: 20220622
  12. GABAPENTIN [Suspect]
     Active Substance: GABAPENTIN
     Dosage: [...] PATIENT WAS TAKING DIFFERENT MEDICATION AND AT A HIGHER DOSE THAN PRESCRIBED - ?GABAPENTIN...
     Dates: end: 20220707
  13. CHLORPROMAZINE [Suspect]
     Active Substance: CHLORPROMAZINE
     Dosage: CHLOROPROMAZINE 100 MG ID
     Dates: start: 20220622
  14. RISPERIDONE [Suspect]
     Active Substance: RISPERIDONE
     Dosage: FOR TWENTY DAYS, RISPERIDONE 1 MG ID
     Dates: start: 20220818
  15. METFORMIN [Concomitant]
     Active Substance: METFORMIN HYDROCHLORIDE
     Dosage: 1000 MG, ID
  16. Empagliflozin/ Metformin [Concomitant]
     Dosage: 12,5/100 MG, BID
  17. GLICLAZIDE [Concomitant]
     Active Substance: GLICLAZIDE
     Dosage: 30 MG ID
  18. ROSUVASTATIN [Concomitant]
     Active Substance: ROSUVASTATIN
     Dosage: 10 MG ID
  19. FENOFIBRATE [Concomitant]
     Active Substance: FENOFIBRATE
     Dosage: ID
  20. LEVOTHYROXINE [Concomitant]
     Active Substance: LEVOTHYROXINE
     Dosage: 25 MCG, ID
  21. Salmeterol/ fluticasone [Concomitant]
     Dosage: 250/50 MCG/DOSE, BID
  22. PROPRANOLOL [Concomitant]
     Active Substance: PROPRANOLOL HYDROCHLORIDE
     Dosage: 40 MG, ID
  23. PANTOPRAZOLE [Concomitant]
     Active Substance: PANTOPRAZOLE
     Dosage: 20 MG, ID
  24. FOLIC ACID [Concomitant]
     Active Substance: FOLIC ACID
     Dosage: 5 MG, ID
  25. CHOLECALCIFEROL [Concomitant]
     Active Substance: CHOLECALCIFEROL
     Dosage: 22400 U.I., 1 TABLET EVERY 28 DAYS

REACTIONS (18)
  - Suicidal ideation [Recovered/Resolved]
  - Hallucination, auditory [Recovered/Resolved]
  - Irritability [Unknown]
  - Self-injurious ideation [Recovered/Resolved]
  - Violence-related symptom [Recovered/Resolved]
  - Anxiety [Unknown]
  - Panic attack [Unknown]
  - Fatigue [Unknown]
  - Weight decreased [Unknown]
  - Nightmare [Unknown]
  - Affective disorder [Recovering/Resolving]
  - Depressed mood [Recovering/Resolving]
  - Anhedonia [Recovering/Resolving]
  - Somnolence [Unknown]
  - Treatment noncompliance [Unknown]
  - Intentional product misuse [Unknown]
  - Insomnia [Unknown]
  - Agitation [Unknown]

NARRATIVE: CASE EVENT DATE: 20220101
